FAERS Safety Report 4561840-1 (Version None)
Quarter: 2005Q1

REPORT INFORMATION
  Report Type: 
  Country: None (occurrence: None)
  Receive Date: 20050126
  Receipt Date: 20050120
  Transmission Date: 20050727
  Serious: Yes (Hospitalization)
  Sender: FDA-Public Use
  Company Number: FR-MERCK-0501FRA00064

PATIENT
  Age: 84 Year
  Sex: Female
  Weight: 55 kg

DRUGS (6)
  1. COZAAR [Suspect]
     Indication: HYPERTENSION
     Route: 048
     Dates: end: 20041109
  2. HALOPERIDOL [Suspect]
     Indication: ANXIETY
     Route: 048
     Dates: start: 20041026, end: 20041109
  3. PIPEMIDIC ACID [Suspect]
     Indication: URINARY TRACT INFECTION
     Route: 048
     Dates: end: 20041109
  4. OMEPRAZOLE [Suspect]
     Indication: PROPHYLAXIS AGAINST GASTROINTESTINAL ULCER
     Route: 048
     Dates: start: 20041021, end: 20041109
  5. ZOLPIDEM TARTRATE [Suspect]
     Indication: INSOMNIA
     Route: 048
     Dates: start: 20040924, end: 20041109
  6. DICLOFENAC SODIUM AND MISOPROSTOL [Suspect]
     Route: 048
     Dates: start: 20041021, end: 20041109

REACTIONS (1)
  - MALAISE [None]
